FAERS Safety Report 8096542-0 (Version None)
Quarter: 2012Q1

REPORT INFORMATION
  Report Type: 
  Country: None (occurrence: None)
  Receive Date: 20120129
  Receipt Date: 20111206
  Transmission Date: 20120608
  Serious: Yes (Other)
  Sender: FDA-Public Use
  Company Number: US-ABBOTT-11P-163-0863265-00

PATIENT
  Sex: Male
  Weight: 89.892 kg

DRUGS (1)
  1. HUMIRA [Suspect]
     Indication: CROHN'S DISEASE
     Dates: start: 20050101, end: 20110301

REACTIONS (4)
  - MALAISE [None]
  - ARTERIAL THERAPEUTIC PROCEDURE [None]
  - TOOTH ABSCESS [None]
  - WOUND [None]
